FAERS Safety Report 6838334-3 (Version None)
Quarter: 2010Q3

REPORT INFORMATION
  Report Type: 
  Country: None (occurrence: None)
  Receive Date: 20100713
  Receipt Date: 20070607
  Transmission Date: 20110219
  Serious: No
  Sender: FDA-Public Use
  Company Number: US-PFIZER INC-2007047701

PATIENT
  Sex: Female
  Weight: 53.181 kg

DRUGS (6)
  1. CHANTIX [Suspect]
     Indication: SMOKING CESSATION THERAPY
     Dates: start: 20070501
  2. PREMPRO [Concomitant]
  3. CELEBREX [Concomitant]
  4. PAXIL [Concomitant]
  5. VITAMIN B [Concomitant]
  6. CARTIA XT [Concomitant]

REACTIONS (1)
  - NAUSEA [None]
